FAERS Safety Report 9784401 (Version 1)
Quarter: 2013Q4

REPORT INFORMATION
  Report Type: Spontaneous
  Country: US (occurrence: US)
  Receive Date: 20131226
  Receipt Date: 20131226
  Transmission Date: 20140711
  Serious: No
  Sender: FDA-Public Use
  Company Number: US-BIOGENIDEC-2013BI121821

PATIENT
  Age: 46 Year
  Sex: Male

DRUGS (1)
  1. TECFIDERA [Suspect]
     Indication: MULTIPLE SCLEROSIS
     Route: 048
     Dates: start: 201309

REACTIONS (6)
  - Gastric disorder [Unknown]
  - Arthralgia [Unknown]
  - Nausea [Unknown]
  - Vomiting [Unknown]
  - Flushing [Unknown]
  - Pruritus [Unknown]
